FAERS Safety Report 16391556 (Version 7)
Quarter: 2020Q1

REPORT INFORMATION
  Report Type: Spontaneous
  Country: JP (occurrence: JP)
  Receive Date: 20190605
  Receipt Date: 20200218
  Transmission Date: 20200409
  Serious: Yes (Hospitalization, Other)
  Sender: FDA-Public Use
  Company Number: JP-ROCHE-2331385

PATIENT
  Age: 57 Year
  Sex: Male
  Weight: 46 kg

DRUGS (2)
  1. XELODA [Suspect]
     Active Substance: CAPECITABINE
     Indication: GASTRIC CANCER
     Route: 048
     Dates: start: 20190405, end: 20190506
  2. ELPLAT [Concomitant]
     Active Substance: OXALIPLATIN
     Route: 041
     Dates: start: 20190405, end: 20190426

REACTIONS (8)
  - Pneumoperitoneum [Recovered/Resolved]
  - Diarrhoea [Unknown]
  - Duodenal ulcer [Unknown]
  - Renal failure [Unknown]
  - Anaemia [Not Recovered/Not Resolved]
  - Hypophagia [Unknown]
  - Platelet count decreased [Recovered/Resolved]
  - Diarrhoea [Recovered/Resolved]

NARRATIVE: CASE EVENT DATE: 20190501
